FAERS Safety Report 4872763-2 (Version None)
Quarter: 2006Q1

REPORT INFORMATION
  Report Type: 
  Country: None (occurrence: None)
  Receive Date: 20060103
  Receipt Date: 20051220
  Transmission Date: 20060701
  Serious: Yes (Death, Hospitalization, Other)
  Sender: FDA-Public Use
  Company Number: 200510895BNE

PATIENT
  Age: 77 Year
  Sex: Female

DRUGS (4)
  1. ASPIRIN [Suspect]
     Dosage: 300 MG, TOTAL DAILY
  2. METALYSE (TENECTEPLASE) [Suspect]
     Indication: ACUTE MYOCARDIAL INFARCTION
  3. HEPARIN [Suspect]
  4. STREPTASE [Suspect]

REACTIONS (3)
  - CARDIAC FAILURE [None]
  - HAEMOPTYSIS [None]
  - HAEMORRHAGE [None]
